FAERS Safety Report 13622381 (Version 1)
Quarter: 2017Q2

REPORT INFORMATION
  Report Type: Spontaneous
  Country: US (occurrence: US)
  Receive Date: 20170607
  Receipt Date: 20170607
  Transmission Date: 20170830
  Serious: No
  Sender: FDA-Public Use
  Company Number: US-ROCHE-541000

PATIENT
  Sex: Male

DRUGS (7)
  1. REYATAZ [Concomitant]
     Active Substance: ATAZANAVIR SULFATE
     Route: 065
  2. ISENTRESS [Concomitant]
     Active Substance: RALTEGRAVIR POTASSIUM
     Route: 065
  3. APTIVUS [Concomitant]
     Active Substance: TIPRANAVIR
     Route: 065
  4. NORVIR [Concomitant]
     Active Substance: RITONAVIR
     Route: 065
  5. FUZEON [Suspect]
     Active Substance: ENFUVIRTIDE
     Indication: HIV INFECTION
     Route: 065
  6. TRUVADA [Concomitant]
     Active Substance: EMTRICITABINE\TENOFOVIR DISOPROXIL FUMARATE
     Route: 065
  7. NEURONTIN [Concomitant]
     Active Substance: GABAPENTIN
     Route: 065

REACTIONS (3)
  - Pyrexia [Recovered/Resolved]
  - Wrong technique in product usage process [Unknown]
  - Injection site reaction [Recovering/Resolving]
